FAERS Safety Report 23903497 (Version 1)
Quarter: 2024Q2

REPORT INFORMATION
  Report Type: Spontaneous
  Country: SE (occurrence: SE)
  Receive Date: 20240527
  Receipt Date: 20240527
  Transmission Date: 20240715
  Serious: Yes (Other)
  Sender: FDA-Public Use
  Company Number: SE-AMGEN-SWESP2024099402

PATIENT
  Sex: Female

DRUGS (1)
  1. PROLIA [Suspect]
     Active Substance: DENOSUMAB
     Indication: Prophylaxis
     Dosage: UNK, Q6MO
     Route: 065
     Dates: start: 202309

REACTIONS (5)
  - Monoplegia [Unknown]
  - Peripheral swelling [Unknown]
  - Pyrexia [Unknown]
  - Myalgia [Unknown]
  - Bone pain [Unknown]
